FAERS Safety Report 22640715 (Version 4)
Quarter: 2024Q2

REPORT INFORMATION
  Report Type: Report from Study
  Country: ES (occurrence: ES)
  Receive Date: 20230626
  Receipt Date: 20240424
  Transmission Date: 20240716
  Serious: Yes (Hospitalization, Other)
  Sender: FDA-Public Use
  Company Number: ES-ELI_LILLY_AND_COMPANY-ES202304001621

PATIENT
  Age: 36 Year
  Sex: Female
  Weight: 56 kg

DRUGS (8)
  1. LETROZOLE [Suspect]
     Active Substance: LETROZOLE
     Indication: Breast cancer metastatic
     Dosage: UNK
     Route: 065
  2. LETROZOLE [Suspect]
     Active Substance: LETROZOLE
     Indication: Diarrhoea
  3. CORTISOL [Suspect]
     Active Substance: HYDROCORTISONE
     Indication: Fatigue
     Dosage: UNK
     Route: 065
  4. ABEMACICLIB [Suspect]
     Active Substance: ABEMACICLIB
     Indication: Breast cancer metastatic
     Dosage: 100 MILLIGRAM
     Route: 048
     Dates: start: 202304
  5. ABEMACICLIB [Suspect]
     Active Substance: ABEMACICLIB
     Dosage: 100 MILLIGRAM
     Route: 048
  6. ABEMACICLIB [Suspect]
     Active Substance: ABEMACICLIB
     Dosage: 300 MILLIGRAM, QD (150 MG, BID)
     Route: 048
     Dates: start: 202109
  7. HYDROCORTISONE [Concomitant]
     Active Substance: HYDROCORTISONE
     Indication: Pituitary cancer metastatic
     Dosage: UNK
     Route: 065
  8. GOSERELIN [Concomitant]
     Active Substance: GOSERELIN
     Indication: Breast cancer metastatic
     Dosage: UNK
     Route: 065

REACTIONS (27)
  - Pneumonia [Recovered/Resolved]
  - Pneumonitis [Not Recovered/Not Resolved]
  - Diarrhoea [Recovered/Resolved]
  - Diabetes insipidus [Recovering/Resolving]
  - Immunodeficiency [Recovering/Resolving]
  - Rheumatoid arthritis [Recovering/Resolving]
  - Gait disturbance [Recovering/Resolving]
  - Emotional disorder [Recovering/Resolving]
  - Anaemia [Recovering/Resolving]
  - Neuralgia [Recovering/Resolving]
  - Urine analysis abnormal [Recovering/Resolving]
  - Anal fissure [Recovered/Resolved]
  - Illness [Recovering/Resolving]
  - Candida infection [Recovering/Resolving]
  - Genital infection [Recovering/Resolving]
  - Respiratory tract infection [Recovering/Resolving]
  - Pharyngitis [Recovered/Resolved]
  - Dehydration [Recovering/Resolving]
  - Fatigue [Recovering/Resolving]
  - Constipation [Recovered/Resolved]
  - Vulvovaginal dryness [Recovering/Resolving]
  - Urinary tract infection [Recovering/Resolving]
  - Bone pain [Recovering/Resolving]
  - Weight increased [Recovering/Resolving]
  - Viral infection [Recovered/Resolved]
  - Sinusitis [Recovered/Resolved]
  - Atelectasis [Not Recovered/Not Resolved]
